FAERS Safety Report 11743541 (Version 9)
Quarter: 2017Q1

REPORT INFORMATION
  Report Type: Spontaneous
  Country: US (occurrence: US)
  Receive Date: 20151116
  Receipt Date: 20170216
  Transmission Date: 20170428
  Serious: Yes (Congenital Anomaly, Other)
  Sender: FDA-Public Use
  Company Number: PHEH2015US023647

PATIENT
  Sex: Male

DRUGS (2)
  1. ZOFRAN [Suspect]
     Active Substance: ONDANSETRON HYDROCHLORIDE
     Indication: FOETAL EXPOSURE DURING PREGNANCY
     Dosage: UNK
     Route: 064
  2. ZOFRAN ODT [Suspect]
     Active Substance: ONDANSETRON HYDROCHLORIDE
     Indication: FOETAL EXPOSURE DURING PREGNANCY
     Dosage: MOTHER^S DOSE: 4 MG, UNK
     Route: 064

REACTIONS (42)
  - Anhedonia [Unknown]
  - Gastroenteritis [Unknown]
  - Conjunctivitis [Unknown]
  - Sleep apnoea syndrome [Unknown]
  - Rhinitis allergic [Unknown]
  - Pyrexia [Unknown]
  - Fallot^s tetralogy [Unknown]
  - Ventricular septal defect [Unknown]
  - Pericardial effusion [Recovered/Resolved]
  - Emotional distress [Unknown]
  - Adenoidal hypertrophy [Unknown]
  - Dyspnoea [Unknown]
  - Diarrhoea [Unknown]
  - Right ventricular dilatation [Unknown]
  - Foetal exposure during pregnancy [Unknown]
  - Bronchitis [Unknown]
  - Upper respiratory tract infection [Unknown]
  - Eczema [Unknown]
  - Otitis externa [Unknown]
  - Pulmonary valve stenosis [Unknown]
  - Cardiac murmur [Unknown]
  - Sinus congestion [Unknown]
  - Pharyngitis [Unknown]
  - Sinusitis [Unknown]
  - Eustachian tube dysfunction [Unknown]
  - Multiple congenital abnormalities [Unknown]
  - Congenital anomaly [Unknown]
  - Cardiac septal defect [Unknown]
  - Dacryostenosis congenital [Unknown]
  - Respiratory syncytial virus bronchiolitis [Unknown]
  - Pain [Unknown]
  - Viral infection [Unknown]
  - Tonsillitis [Unknown]
  - Gait disturbance [Unknown]
  - Tonsillar hypertrophy [Unknown]
  - Anxiety [Unknown]
  - Heart disease congenital [Unknown]
  - Pulmonary artery stenosis congenital [Unknown]
  - Otitis media chronic [Unknown]
  - Injury [Unknown]
  - Epistaxis [Unknown]
  - Eustachian tube obstruction [Unknown]
